FAERS Safety Report 10272867 (Version 2)
Quarter: 2014Q3

REPORT INFORMATION
  Report Type: Spontaneous
  Country: US (occurrence: US)
  Receive Date: 20140702
  Receipt Date: 20140728
  Transmission Date: 20150326
  Serious: Yes (Hospitalization, Other)
  Sender: FDA-Public Use
  Company Number: US-JNJFOC-20140616921

PATIENT
  Age: 71 Year
  Sex: Female

DRUGS (1)
  1. TRAMADOL HYDROCHLORIDE. [Suspect]
     Active Substance: TRAMADOL HYDROCHLORIDE
     Indication: ARTHRALGIA
     Dosage: EVERY 6 HOURS
     Route: 048

REACTIONS (10)
  - Persecutory delusion [Recovered/Resolved]
  - Leukocytosis [Recovered/Resolved]
  - Drug abuse [Unknown]
  - Overdose [Unknown]
  - Mental status changes [Recovered/Resolved]
  - Hallucination, visual [Recovered/Resolved]
  - Miosis [Recovered/Resolved]
  - Muscular weakness [Recovered/Resolved]
  - Hallucination, auditory [Recovered/Resolved]
  - Drug withdrawal syndrome [Unknown]

NARRATIVE: CASE EVENT DATE: 201307
